FAERS Safety Report 4628144-X (Version None)
Quarter: 2005Q2

REPORT INFORMATION
  Report Type: 
  Country: None (occurrence: None)
  Receive Date: 20050401
  Receipt Date: 20050314
  Transmission Date: 20051028
  Serious: Yes (Hospitalization)
  Sender: FDA-Public Use
  Company Number: US-YAMANOUCHI-YPA20050109

PATIENT

DRUGS (1)
  1. VESICARE [Suspect]
     Indication: URINARY INCONTINENCE
     Dosage: 5 MG PO
     Route: 048
     Dates: end: 20050309

REACTIONS (2)
  - BLOOD SODIUM DECREASED [None]
  - PLATELET COUNT DECREASED [None]
